FAERS Safety Report 8580709 (Version 6)
Quarter: 2013Q2

REPORT INFORMATION
  Report Type: Report from Study
  Country: FR (occurrence: FR)
  Receive Date: 20120525
  Receipt Date: 20130605
  Transmission Date: 20140414
  Serious: Yes (Hospitalization, Disabling)
  Sender: FDA-Public Use
  Company Number: FR-ROCHE-1043325

PATIENT
  Age: 16 Year
  Sex: Female
  Weight: 45.4 kg

DRUGS (7)
  1. BEVACIZUMAB [Suspect]
     Indication: NEOPLASM MALIGNANT
     Dosage: MOST RECENT DOSE PRIOR TO EVENT : 09/FEB/2012
     Route: 042
     Dates: start: 20120119
  2. BEVACIZUMAB [Suspect]
     Dosage: LAST DOSE PRIOR TO SAE: 22/MAR/2012
     Route: 042
     Dates: start: 20120209
  3. DACTINOMYCIN [Suspect]
     Indication: NEOPLASM MALIGNANT
     Dosage: LAST DOSE PRIOR TO SAE: 22/MAR/2012
     Route: 042
     Dates: start: 20120119
  4. DOXORUBICIN [Suspect]
     Indication: NEOPLASM MALIGNANT
     Dosage: LAST DOSE PRIOR TO SAE: 10/FEB/2012
     Route: 042
     Dates: start: 20120119
  5. DOXORUBICIN [Suspect]
     Dosage: LAST DOSE PRIOR TO SAE 23/MAR/2012
     Route: 042
     Dates: start: 20120119
  6. IFOSFAMIDE [Suspect]
     Indication: NEOPLASM MALIGNANT
     Dosage: LAST DOSE PRIOR TO SAE 23/MAR/2012
     Route: 042
     Dates: start: 20120119
  7. VINCRISTINE [Suspect]
     Indication: NEOPLASM MALIGNANT
     Dosage: LAST DOSE PRIOR TO SAE 22/MAR/2012
     Route: 042
     Dates: start: 20120119

REACTIONS (3)
  - Febrile bone marrow aplasia [Recovered/Resolved]
  - Febrile neutropenia [Recovered/Resolved]
  - Malnutrition [Recovered/Resolved]
